FAERS Safety Report 15453059 (Version 5)
Quarter: 2019Q4

REPORT INFORMATION
  Report Type: Report from Study
  Country: CA (occurrence: CA)
  Receive Date: 20181001
  Receipt Date: 20191127
  Transmission Date: 20200122
  Serious: Yes (Hospitalization, Other)
  Sender: FDA-Public Use
  Company Number: CA-JNJFOC-20180930496

PATIENT
  Age: 61 Year
  Sex: Female
  Weight: 53.4 kg

DRUGS (2)
  1. STELARA [Suspect]
     Active Substance: USTEKINUMAB
     Indication: CROHN^S DISEASE
     Dosage: STRENGTH = 130 MG
     Route: 042
     Dates: start: 20180828
  2. STELARA [Suspect]
     Active Substance: USTEKINUMAB
     Route: 042

REACTIONS (9)
  - Abdominal mass [Not Recovered/Not Resolved]
  - Product use issue [Unknown]
  - Intestinal fistula [Unknown]
  - Abscess intestinal [Unknown]
  - Infected fistula [Unknown]
  - Infected cyst [Not Recovered/Not Resolved]
  - Anal abscess [Unknown]
  - Urinary tract infection [Unknown]
  - Off label use [Unknown]

NARRATIVE: CASE EVENT DATE: 2018
